FAERS Safety Report 6828942-8 (Version None)
Quarter: 2010Q3

REPORT INFORMATION
  Report Type: 
  Country: None (occurrence: None)
  Receive Date: 20100709
  Receipt Date: 20070222
  Transmission Date: 20110219
  Serious: No
  Sender: FDA-Public Use
  Company Number: US-PFIZER INC-2007014955

PATIENT
  Sex: Female

DRUGS (7)
  1. CHANTIX [Suspect]
     Indication: SMOKING CESSATION THERAPY
     Dates: start: 20070201
  2. RESTORIL [Concomitant]
     Indication: INSOMNIA
  3. PRAVACHOL [Concomitant]
     Indication: BLOOD CHOLESTEROL
  4. DIOVAN [Concomitant]
     Indication: BLOOD PRESSURE
  5. NORVASC [Concomitant]
     Indication: BLOOD PRESSURE
  6. MOBIC [Concomitant]
     Indication: BACK DISORDER
  7. VICODIN [Concomitant]
     Indication: BACK DISORDER

REACTIONS (3)
  - BINGE EATING [None]
  - INSOMNIA [None]
  - WEIGHT INCREASED [None]
